FAERS Safety Report 4967511-1 (Version None)
Quarter: 2006Q2

REPORT INFORMATION
  Report Type: 
  Country: None (occurrence: None)
  Receive Date: 20060404
  Receipt Date: 20060320
  Transmission Date: 20061013
  Serious: Yes (Disabling)
  Sender: FDA-Public Use
  Company Number: GXKR2006GB01663

PATIENT
  Age: 63 Year
  Sex: Male
  Weight: 90.5 kg

DRUGS (2)
  1. AMOXICILLIN [Suspect]
     Indication: LOWER RESPIRATORY TRACT INFECTION
     Dosage: 500 MG, TID, ORAL
     Route: 048
     Dates: start: 20051205, end: 20051210
  2. NICOTINE [Concomitant]

REACTIONS (1)
  - UVEITIS [None]
